FAERS Safety Report 25763740 (Version 1)
Quarter: 2025Q3

REPORT INFORMATION
  Report Type: Spontaneous
  Country: US (occurrence: US)
  Receive Date: 20250905
  Receipt Date: 20250905
  Transmission Date: 20251021
  Serious: No
  Sender: DOMPE FARMACEUTICI
  Company Number: US-FARMAPROD-202411-3786

PATIENT
  Sex: Female

DRUGS (15)
  1. OXERVATE [Suspect]
     Active Substance: CENEGERMIN-BKBJ
     Indication: Neurotrophic keratopathy
     Route: 047
     Dates: start: 20241017
  2. OXERVATE [Suspect]
     Active Substance: CENEGERMIN-BKBJ
  3. BUTALBITAL-ACETAMINOPHEN-CAFFE [Concomitant]
  4. PREDNISOLONE-NEPAFENAC [Concomitant]
  5. CELECOXIB [Concomitant]
     Active Substance: CELECOXIB
  6. BUPROPION HYDROCHLORIDE [Concomitant]
     Active Substance: BUPROPION HYDROCHLORIDE
  7. CLOPIDOGREL [Concomitant]
     Active Substance: CLOPIDOGREL BISULFATE
  8. ROSUVASTATIN CALCIUM [Concomitant]
     Active Substance: ROSUVASTATIN CALCIUM
  9. MEMANTINE [Concomitant]
     Active Substance: MEMANTINE
  10. VENLAFAXINE HCL [Concomitant]
     Active Substance: VENLAFAXINE HYDROCHLORIDE
  11. EZETIMIBE [Concomitant]
     Active Substance: EZETIMIBE
  12. ROCKLATAN [Concomitant]
     Active Substance: LATANOPROST\NETARSUDIL MESYLATE
  13. TIMOLOL MALEATE [Concomitant]
     Active Substance: TIMOLOL MALEATE
  14. SIMBRINZA [Concomitant]
     Active Substance: BRIMONIDINE TARTRATE\BRINZOLAMIDE
  15. NEOMYCIN-POLYMYXIN-DEXAMETH [Concomitant]

REACTIONS (6)
  - Eye irritation [Unknown]
  - Eye pain [Not Recovered/Not Resolved]
  - Eye irritation [Not Recovered/Not Resolved]
  - Ocular hyperaemia [Not Recovered/Not Resolved]
  - Eye pruritus [Not Recovered/Not Resolved]
  - Headache [Unknown]
